FAERS Safety Report 20848455 (Version 1)
Quarter: 2022Q2

REPORT INFORMATION
  Report Type: Spontaneous
  Country: US (occurrence: US)
  Receive Date: 20220519
  Receipt Date: 20220519
  Transmission Date: 20220721
  Serious: Yes (Hospitalization)
  Sender: FDA-Public Use
  Company Number: US-MYLANLABS-2022M1036735

PATIENT
  Age: 57 Year
  Sex: Male

DRUGS (3)
  1. FENTANYL [Suspect]
     Active Substance: FENTANYL
     Indication: Product used for unknown indication
     Dosage: HE RECEIVED HIS WIFE^S FENTANYL PATCHES VIA TWO ROUTES: CHEWING
  2. FENTANYL [Suspect]
     Active Substance: FENTANYL
     Dosage: HE RECEIVED HIS WIFE^S FENTANYL PATCHES VIA TWO ROUTES: HEATING...
  3. CANNABIS SATIVA SUBSP. INDICA TOP [Concomitant]
     Active Substance: CANNABIS SATIVA SUBSP. INDICA TOP
     Indication: Post-traumatic stress disorder
     Dosage: UNK UNK, QW
     Route: 065

REACTIONS (8)
  - Drug abuse [Unknown]
  - Withdrawal syndrome [Recovered/Resolved]
  - Hyperhidrosis [Recovered/Resolved]
  - Lacrimation increased [Recovered/Resolved]
  - Respiratory symptom [Recovered/Resolved]
  - Abdominal pain [Recovered/Resolved]
  - Tachycardia [Recovered/Resolved]
  - Psychotic disorder [Recovered/Resolved]
